FAERS Safety Report 15713653 (Version 1)
Quarter: 2018Q4

REPORT INFORMATION
  Report Type: Spontaneous
  Country: US (occurrence: US)
  Receive Date: 20181212
  Receipt Date: 20181212
  Transmission Date: 20190205
  Serious: Yes (Other)
  Sender: FDA-Public Use
  Company Number: US-TEVA-2018-US-984674

PATIENT
  Sex: Female

DRUGS (1)
  1. TEVA AMLODIPINE/VALSARTAN/HYDROCHLOROTHIAZIDE [Suspect]
     Active Substance: AMLODIPINE\HYDROCHLOROTHIAZIDE\VALSARTAN
     Dosage: 1 DOSAGE FORM = AMLODIPINE 10MG + VALSARTAN 320MG + HYDROCHLOROTHIAZIDE 25MG
     Dates: start: 20170905, end: 20171205

REACTIONS (2)
  - Neoplasm malignant [Unknown]
  - Recalled product administered [Unknown]
